FAERS Safety Report 24599591 (Version 3)
Quarter: 2025Q2

REPORT INFORMATION
  Report Type: Spontaneous
  Country: JP (occurrence: JP)
  Receive Date: 20241110
  Receipt Date: 20250519
  Transmission Date: 20250716
  Serious: Yes (Hospitalization, Other)
  Sender: ARDELYX
  Company Number: JP-ARDELYX-2024ARDX008129

PATIENT
  Age: 80 Year
  Sex: Female

DRUGS (1)
  1. TENAPANOR HYDROCHLORIDE [Suspect]
     Active Substance: TENAPANOR HYDROCHLORIDE
     Indication: Hyperphosphataemia
     Route: 048
     Dates: start: 20240612, end: 20240917

REACTIONS (4)
  - Compression fracture [Unknown]
  - Dementia [Unknown]
  - Fall [Unknown]
  - Diarrhoea [Recovered/Resolved]

NARRATIVE: CASE EVENT DATE: 20240101
